FAERS Safety Report 7533992-2 (Version None)
Quarter: 2011Q2

REPORT INFORMATION
  Report Type: 
  Country: None (occurrence: None)
  Receive Date: 20110608
  Receipt Date: 20060717
  Transmission Date: 20111010
  Serious: Yes (Hospitalization)
  Sender: FDA-Public Use
  Company Number: PHNU2006PL00619

PATIENT
  Sex: Male
  Weight: 90 kg

DRUGS (8)
  1. PLAVIX [Concomitant]
     Dosage: 75 MG, QD
  2. BISOCARD [Concomitant]
     Dosage: 5 MG, QD
  3. ZOCOR [Concomitant]
     Dosage: 20 MG, QD
  4. ASPIRIN [Concomitant]
     Dosage: 75 MG, QD
  5. FLUVASTATIN SODIUM [Suspect]
     Dosage: 80 MG, QD
     Route: 048
     Dates: start: 20050708, end: 20051201
  6. QUINAPRIL HYDROCHLORIDE [Concomitant]
     Dosage: 5 MG, BID
  7. FLUVASTATIN SODIUM [Suspect]
     Dosage: 80 MG, QD
     Route: 048
     Dates: start: 20060101
  8. AMARYL [Concomitant]
     Dosage: 2 MG, QD

REACTIONS (2)
  - ARRHYTHMIA [None]
  - CHEST PAIN [None]
